FAERS Safety Report 10370125 (Version 1)
Quarter: 2014Q3

REPORT INFORMATION
  Report Type: Spontaneous
  Country: US (occurrence: US)
  Receive Date: 20140808
  Receipt Date: 20140808
  Transmission Date: 20150326
  Serious: Yes (Hospitalization, Other)
  Sender: FDA-Public Use
  Company Number: US-ASTRAZENECA-2014SE56192

PATIENT
  Age: 95 Year
  Sex: Female
  Weight: 60.3 kg

DRUGS (8)
  1. METOPROLOL SUCCINATE ER [Suspect]
     Active Substance: METOPROLOL SUCCINATE
     Indication: CARDIAC DISORDER
     Route: 048
     Dates: start: 2009
  2. COLON PROBIOTIC BY PHILLIPS [Concomitant]
     Indication: SUPPLEMENTATION THERAPY
  3. OMEPRAZOLE. [Suspect]
     Active Substance: OMEPRAZOLE
     Indication: GASTROOESOPHAGEAL REFLUX DISEASE
     Route: 048
     Dates: start: 2004
  4. CRANBERRY CAPSULE [Concomitant]
     Indication: PROPHYLAXIS
     Dosage: NOT REPORTED DAILY
     Dates: start: 2009
  5. FASLODEX [Suspect]
     Active Substance: FULVESTRANT
     Indication: METASTASES TO BONE
     Route: 030
     Dates: start: 2013
  6. VITAMIN D3 [Concomitant]
     Active Substance: CHOLECALCIFEROL
     Indication: SUPPLEMENTATION THERAPY
     Dosage: 5000 DAILY
  7. TAMOXIFEN [Suspect]
     Active Substance: TAMOXIFEN
     Indication: BREAST CANCER METASTATIC
     Route: 048
     Dates: start: 20101218, end: 201310
  8. MULTIVITAMIN BY NATURES MADE [Concomitant]
     Indication: SUPPLEMENTATION THERAPY

REACTIONS (8)
  - Arthritis [Not Recovered/Not Resolved]
  - Scoliosis [Not Recovered/Not Resolved]
  - Spinal column stenosis [Not Recovered/Not Resolved]
  - Metastases to bone [Not Recovered/Not Resolved]
  - Carotid artery occlusion [Recovered/Resolved]
  - Procedural pain [Not Recovered/Not Resolved]
  - Body height decreased [Unknown]
  - Carpal tunnel syndrome [Recovered/Resolved]

NARRATIVE: CASE EVENT DATE: 2009
